FAERS Safety Report 9543182 (Version 2)
Quarter: 2013Q3

REPORT INFORMATION
  Report Type: Spontaneous
  Country: US (occurrence: US)
  Receive Date: 20130923
  Receipt Date: 20130923
  Transmission Date: 20140515
  Serious: No
  Sender: FDA-Public Use
  Company Number: US-PURDUE-USA-2012-0094486

PATIENT
  Age: 61 Year
  Sex: Female

DRUGS (1)
  1. DILAUDID TABLET [Suspect]
     Indication: PAIN
     Dosage: 2 MG, Q4H PRN
     Route: 048
     Dates: start: 2010, end: 20121010

REACTIONS (3)
  - Rectal spasm [Recovered/Resolved]
  - Muscle spasms [Unknown]
  - Drug hypersensitivity [Unknown]
